FAERS Safety Report 6481357-7 (Version None)
Quarter: 2009Q4

REPORT INFORMATION
  Report Type: 
  Country: None (occurrence: None)
  Receive Date: 20091208
  Receipt Date: 20091201
  Transmission Date: 20100525
  Serious: Yes (Hospitalization)
  Sender: FDA-Public Use
  Company Number: Z0002459B

PATIENT
  Sex: Male
  Weight: 60.9 kg

DRUGS (1)
  1. CHLORAMBUCIL [Suspect]
     Route: 048
     Dates: start: 20091016, end: 20091019

REACTIONS (1)
  - COUGH [None]
